FAERS Safety Report 7622600-8 (Version None)
Quarter: 2011Q3

REPORT INFORMATION
  Report Type: 
  Country: None (occurrence: None)
  Receive Date: 20110712
  Receipt Date: 20110627
  Transmission Date: 20111222
  Serious: Yes (Life-Threatening, Hospitalization, Other)
  Sender: FDA-Public Use
  Company Number: 2011MA008096

PATIENT
  Sex: Male

DRUGS (3)
  1. CLOZARIL [Suspect]
     Indication: SCHIZOPHRENIA
     Dosage: 400 MG;QD;PO
     Route: 048
     Dates: start: 20100410
  2. ZOPICLONE (ZOPICLONE) [Suspect]
  3. CITALOPRAM HYDROBROMIDE [Suspect]
     Dosage: 60 MG;QD;PO
     Route: 048

REACTIONS (2)
  - HALLUCINATION, AUDITORY [None]
  - OVERDOSE [None]
